FAERS Safety Report 5467744-4 (Version None)
Quarter: 2007Q3

REPORT INFORMATION
  Report Type: 
  Country: None (occurrence: None)
  Receive Date: 20070926
  Receipt Date: 20070918
  Transmission Date: 20080115
  Serious: Yes (Other)
  Sender: FDA-Public Use
  Company Number: PHBS2007FI15550

PATIENT
  Age: 10 Year
  Sex: Male

DRUGS (4)
  1. PAMIDRONATE DISODIUM [Suspect]
     Indication: OSTEOPOROSIS
     Dosage: 3 CONSEC DAYS/EVERY 4/12
     Route: 042
  2. PREDNISONE [Concomitant]
     Dosage: 5 MG, QD
  3. PREDNISONE [Concomitant]
     Dosage: 5 MG, QOD
  4. PREDNISONE [Concomitant]
     Dosage: 2.5 MG, QOD

REACTIONS (5)
  - BIOPSY BONE [None]
  - BONE PAIN [None]
  - CONDITION AGGRAVATED [None]
  - FRACTURE [None]
  - RESORPTION BONE INCREASED [None]
